FAERS Safety Report 12096546 (Version 1)
Quarter: 2016Q1

REPORT INFORMATION
  Report Type: Spontaneous
  Country: US (occurrence: US)
  Receive Date: 20160220
  Receipt Date: 20160220
  Transmission Date: 20160526
  Serious: No
  Sender: FDA-Public Use
  Company Number: US-ACORDA-ACO_108881_2015

PATIENT
  Age: 61 Year
  Sex: Female
  Weight: 47.62 kg

DRUGS (3)
  1. MS MEDICATION [Concomitant]
     Indication: MULTIPLE SCLEROSIS
     Dosage: UNK
  2. METHOTREXATE [Concomitant]
     Active Substance: METHOTREXATE
     Indication: PRODUCT USED FOR UNKNOWN INDICATION
     Dosage: UNK
  3. AMPYRA [Suspect]
     Active Substance: DALFAMPRIDINE
     Indication: GAIT DISTURBANCE
     Dosage: 10 MG, BID
     Route: 048
     Dates: start: 201410

REACTIONS (2)
  - Fall [Not Recovered/Not Resolved]
  - Disturbance in attention [Not Recovered/Not Resolved]
